FAERS Safety Report 5547218-2 (Version None)
Quarter: 2007Q4

REPORT INFORMATION
  Report Type: 
  Country: None (occurrence: None)
  Receive Date: 20071211
  Receipt Date: 20071204
  Transmission Date: 20080405
  Serious: Yes (Other)
  Sender: FDA-Public Use
  Company Number: A0680911A

PATIENT
  Age: 62 Year
  Sex: Female

DRUGS (2)
  1. COREG CR [Suspect]
     Indication: HYPERTENSION
     Dosage: 80MG PER DAY
     Route: 048
     Dates: start: 20070601
  2. SYNTHROID [Concomitant]

REACTIONS (4)
  - ASTHMA [None]
  - COUGH [None]
  - DYSPNOEA [None]
  - NASOPHARYNGITIS [None]
